FAERS Safety Report 13118455 (Version 3)
Quarter: 2017Q1

REPORT INFORMATION
  Report Type: Spontaneous
  Country: JP (occurrence: JP)
  Receive Date: 20170116
  Receipt Date: 20170126
  Transmission Date: 20170428
  Serious: Yes (Hospitalization, Other)
  Sender: FDA-Public Use
  Company Number: JP-009507513-1701JPN005508

PATIENT
  Age: 34 Year
  Sex: Male

DRUGS (3)
  1. DOGMATYL [Suspect]
     Active Substance: SULPIRIDE
     Dosage: UNK
     Route: 048
     Dates: start: 20170110, end: 20170110
  2. BELSOMRA [Suspect]
     Active Substance: SUVOREXANT
     Dosage: MORE THAN 20 TABLETS
     Route: 048
     Dates: start: 20170110, end: 20170110
  3. LENDORMIN [Suspect]
     Active Substance: BROTIZOLAM
     Dosage: UNK
     Route: 048
     Dates: start: 20170110, end: 20170110

REACTIONS (4)
  - Suicide attempt [Unknown]
  - Aggression [Unknown]
  - Altered state of consciousness [Recovered/Resolved]
  - Intentional overdose [Unknown]

NARRATIVE: CASE EVENT DATE: 20170110
